FAERS Safety Report 8596868-8 (Version None)
Quarter: 2012Q3

REPORT INFORMATION
  Report Type: 
  Country: None (occurrence: None)
  Receive Date: 20120815
  Receipt Date: 20120809
  Transmission Date: 20120928
  Serious: Yes (Death, Other)
  Sender: FDA-Public Use
  Company Number: KR-BAXTER-2012BAX014343

PATIENT
  Age: 68 Year
  Sex: Male

DRUGS (4)
  1. IFOSFAMIDE [Suspect]
     Indication: LEIOMYOSARCOMA
     Dosage: 2 G/M^2
     Route: 042
  2. IFOSFAMIDE [Suspect]
     Dosage: 2 G/M^2  OVER 24 HRS
     Route: 042
  3. MESNA [Concomitant]
     Dosage: 2 G/M^2
     Route: 042
  4. MESNA [Concomitant]
     Indication: PROPHYLAXIS
     Dosage: 12 G/M^2
     Route: 042

REACTIONS (4)
  - METABOLIC ACIDOSIS [None]
  - SEPSIS [None]
  - RENAL FAILURE ACUTE [None]
  - ENCEPHALOPATHY [None]
